FAERS Safety Report 12317397 (Version 1)
Quarter: 2016Q2

REPORT INFORMATION
  Report Type: Spontaneous
  Country: US (occurrence: US)
  Receive Date: 20160429
  Receipt Date: 20160429
  Transmission Date: 20160815
  Serious: No
  Sender: FDA-Public Use
  Company Number: US-PFIZER INC-2016197156

PATIENT
  Sex: Male

DRUGS (2)
  1. LYRICA [Suspect]
     Active Substance: PREGABALIN
     Indication: POST HERPETIC NEURALGIA
  2. LYRICA [Suspect]
     Active Substance: PREGABALIN
     Indication: NERVE INJURY

REACTIONS (6)
  - Abdominal pain upper [Unknown]
  - Intentional product use issue [Unknown]
  - Pain [Unknown]
  - Condition aggravated [Unknown]
  - Intentional product misuse [Unknown]
  - Pharyngeal oedema [Unknown]
